FAERS Safety Report 8322180-8 (Version None)
Quarter: 2012Q2

REPORT INFORMATION
  Report Type: 
  Country: None (occurrence: None)
  Receive Date: 20120426
  Receipt Date: 20120418
  Transmission Date: 20120825
  Serious: Yes (Other)
  Sender: FDA-Public Use
  Company Number: DKLU1077354

PATIENT
  Age: 21 Year
  Sex: Female

DRUGS (6)
  1. BANZEL (RUFINAMIDE) [Concomitant]
  2. DIOMAX (ALL OTHE THERAPEUTIC PRODUCTS) [Concomitant]
  3. ONFI [Suspect]
     Indication: CONVULSION
     Dates: start: 20120201
  4. ONFI [Suspect]
     Indication: LENNOX-GASTAUT SYNDROME
     Dates: start: 20120201
  5. DILANTIN [Concomitant]
  6. KEPPRA [Concomitant]

REACTIONS (6)
  - FALL [None]
  - CLAVICLE FRACTURE [None]
  - CONDITION AGGRAVATED [None]
  - CONVULSION [None]
  - DROP ATTACKS [None]
  - ABNORMAL BEHAVIOUR [None]
